FAERS Safety Report 11055880 (Version 1)
Quarter: 2015Q2

REPORT INFORMATION
  Report Type: Report from Study
  Country: BR (occurrence: BR)
  Receive Date: 20150422
  Receipt Date: 20150422
  Transmission Date: 20150821
  Serious: Yes (Hospitalization)
  Sender: FDA-Public Use
  Company Number: BR-ABBVIE-15K-020-1377915-00

PATIENT
  Age: 42 Year
  Sex: Female
  Weight: 42 kg

DRUGS (2)
  1. HUMIRA [Suspect]
     Active Substance: ADALIMUMAB
     Indication: RHEUMATOID ARTHRITIS
     Route: 058
     Dates: start: 20121122, end: 201407
  2. PREDNISONE. [Concomitant]
     Active Substance: PREDNISONE
     Indication: ARTHRITIS
     Route: 048
     Dates: start: 2000

REACTIONS (3)
  - Fatigue [Unknown]
  - Speech disorder [Recovered/Resolved]
  - Pneumonitis [Recovering/Resolving]

NARRATIVE: CASE EVENT DATE: 201406
